FAERS Safety Report 17399887 (Version 1)
Quarter: 2020Q1

REPORT INFORMATION
  Report Type: Spontaneous
  Country: DE (occurrence: DE)
  Receive Date: 20200211
  Receipt Date: 20200211
  Transmission Date: 20200409
  Serious: Yes (Hospitalization)
  Sender: FDA-Public Use
  Company Number: DE-TEVA-2020-DE-1184015

PATIENT
  Age: 9 Year
  Sex: Male
  Weight: 41 kg

DRUGS (2)
  1. BRIVIACT [Concomitant]
     Active Substance: BRIVARACETAM
     Indication: PARTIAL SEIZURES
     Dosage: DAILY DOSE: 150 MG MILLGRAM(S) EVERY DAYS 2 SEPARATED DOSES
     Route: 048
     Dates: start: 201901, end: 20190514
  2. VALPROAT [Suspect]
     Active Substance: VALPROATE SODIUM
     Dosage: DAILY DOSE: 600 MG MILLGRAM(S) EVERY DAYS 2 SEPARATED DOSES
     Route: 048
     Dates: start: 201903, end: 20190514

REACTIONS (6)
  - Personality change [Recovered/Resolved]
  - Sleep disorder [Recovered/Resolved]
  - Epilepsy [Recovered/Resolved]
  - Agitation [Recovered/Resolved]
  - Aggression [Recovered/Resolved]
  - Restlessness [Recovered/Resolved]

NARRATIVE: CASE EVENT DATE: 20190507
